FAERS Safety Report 7958362-4 (Version None)
Quarter: 2011Q4

REPORT INFORMATION
  Report Type: 
  Country: None (occurrence: None)
  Receive Date: 20111205
  Receipt Date: 20111130
  Transmission Date: 20120403
  Serious: Yes (Other)
  Sender: FDA-Public Use
  Company Number: US-ABBOTT-11P-163-0872261-00

PATIENT
  Sex: Female

DRUGS (1)
  1. HUMIRA [Suspect]
     Indication: RHEUMATOID ARTHRITIS
     Route: 058
     Dates: start: 20110101

REACTIONS (9)
  - CYST [None]
  - ERYTHEMA [None]
  - INFECTED CYST [None]
  - ASTHENIA [None]
  - SEPSIS [None]
  - MASS [None]
  - DIARRHOEA [None]
  - PALLOR [None]
  - PAIN [None]
